FAERS Safety Report 6596342-4 (Version None)
Quarter: 2010Q1

REPORT INFORMATION
  Report Type: 
  Country: None (occurrence: None)
  Receive Date: 20100223
  Receipt Date: 20100211
  Transmission Date: 20100710
  Serious: Yes (Other)
  Sender: FDA-Public Use
  Company Number: AU-ELI_LILLY_AND_COMPANY-AU201002004841

PATIENT
  Age: 74 Year
  Sex: Female

DRUGS (3)
  1. HUMALOG MIX 75/25 [Suspect]
     Indication: DIABETES MELLITUS
     Dosage: 12 U, 2/D
  2. ACTOS [Concomitant]
     Dosage: 30 MG, UNK
  3. METFORMIN HCL [Concomitant]
     Dosage: 1500 MG, UNK

REACTIONS (1)
  - HYPOGLYCAEMIC UNCONSCIOUSNESS [None]
